FAERS Safety Report 4848047-5 (Version None)
Quarter: 2005Q4

REPORT INFORMATION
  Report Type: 
  Country: None (occurrence: None)
  Receive Date: 20051207
  Receipt Date: 20051207
  Transmission Date: 20060501
  Serious: Yes (Hospitalization)
  Sender: FDA-Public Use
  Company Number: None

PATIENT
  Age: 44 Year
  Sex: Female
  Weight: 68.4932 kg

DRUGS (1)
  1. SKELAXIN [Suspect]
     Indication: ARTHRALGIA
     Dosage: 1/2 TABLET; 1 TABLET QAM, NOON; QHS PO
     Route: 048

REACTIONS (3)
  - FEELING ABNORMAL [None]
  - RASH [None]
  - SWELLING [None]
